FAERS Safety Report 8240366-8 (Version None)
Quarter: 2012Q1

REPORT INFORMATION
  Report Type: 
  Country: None (occurrence: None)
  Receive Date: 20120328
  Receipt Date: 20120323
  Transmission Date: 20120608
  Serious: Yes (Hospitalization, Other)
  Sender: FDA-Public Use
  Company Number: AU-PFIZER INC-2012076473

PATIENT
  Age: 49 Year
  Sex: Male

DRUGS (1)
  1. VARENICLINE TARTRATE [Suspect]
     Dosage: UNK
     Dates: start: 20111015, end: 20111118

REACTIONS (4)
  - AGITATED DEPRESSION [None]
  - SUICIDAL IDEATION [None]
  - ALCOHOL USE [None]
  - PANIC ATTACK [None]
